FAERS Safety Report 17529319 (Version 1)
Quarter: 2020Q1

REPORT INFORMATION
  Report Type: Spontaneous
  Country: US (occurrence: US)
  Receive Date: 20200312
  Receipt Date: 20200312
  Transmission Date: 20200409
  Serious: No
  Sender: FDA-Public Use
  Company Number: US-STRIDES ARCOLAB LIMITED-2020SP001348

PATIENT
  Sex: Female

DRUGS (2)
  1. RANITIDINE TABLETS, USP 150MG [Suspect]
     Active Substance: RANITIDINE
     Indication: PRODUCT USED FOR UNKNOWN INDICATION
     Dosage: 150 MILLIGRAM, BID (GLENMARK)
     Route: 065
  2. RANITIDINE TABLETS, USP 150MG [Suspect]
     Active Substance: RANITIDINE
     Dosage: UNK (STRIDES) (AS NEEDED)
     Route: 065

REACTIONS (1)
  - Pruritus [Unknown]
